FAERS Safety Report 17293277 (Version 1)
Quarter: 2020Q1

REPORT INFORMATION
  Report Type: Spontaneous
  Country: FR (occurrence: FR)
  Receive Date: 20200121
  Receipt Date: 20200121
  Transmission Date: 20200409
  Serious: Yes (Other)
  Sender: FDA-Public Use
  Company Number: FR-TEVA-2020-FR-1170753

PATIENT
  Age: 11 Year
  Sex: Male

DRUGS (6)
  1. PROPOFOL. [Suspect]
     Active Substance: PROPOFOL
     Indication: GENERAL ANAESTHESIA
     Dosage: UNSPECIFIED
     Route: 042
     Dates: start: 2003, end: 2003
  2. CISATRACURIUM. [Suspect]
     Active Substance: CISATRACURIUM
     Indication: GENERAL ANAESTHESIA
     Dosage: UNSPECIFIED
     Route: 042
     Dates: start: 2003, end: 2003
  3. ATRACURIUM [Suspect]
     Active Substance: ATRACURIUM
     Indication: GENERAL ANAESTHESIA
     Dosage: UNSPECIFIED
     Route: 042
     Dates: start: 2003, end: 2003
  4. ROCURONIUM (BROMURE DE) [Suspect]
     Active Substance: ROCURONIUM BROMIDE
     Indication: GENERAL ANAESTHESIA
     Dosage: UNSPECIFIED
     Route: 042
     Dates: start: 2003, end: 2003
  5. SUXAMETHONIUM (CHLORURE DE) [Suspect]
     Active Substance: SUCCINYLCHOLINE CHLORIDE
     Indication: GENERAL ANAESTHESIA
     Dosage: UNSPECIFIED
     Route: 042
     Dates: start: 2003, end: 2003
  6. SUFENTANIL [Suspect]
     Active Substance: SUFENTANIL
     Indication: GENERAL ANAESTHESIA
     Dosage: UNSPECIFIED
     Route: 042
     Dates: start: 2003, end: 2003

REACTIONS (1)
  - Urticaria [Recovered/Resolved]

NARRATIVE: CASE EVENT DATE: 2003
